FAERS Safety Report 9088437 (Version 1)
Quarter: 2013Q1

REPORT INFORMATION
  Report Type: Spontaneous
  Country: US (occurrence: US)
  Receive Date: 20130201
  Receipt Date: 20130201
  Transmission Date: 20140127
  Serious: No
  Sender: FDA-Public Use
  Company Number: US-GALDERMA-US-GDP-12414833

PATIENT
  Age: 20 Year
  Sex: Male
  Weight: 59 kg

DRUGS (3)
  1. EPIDUO [Suspect]
     Indication: ACNE
     Route: 061
  2. CETAPHIL DERMACONTROL SPF 30 [Suspect]
     Indication: THERAPEUTIC SKIN CARE TOPICAL
     Route: 061
     Dates: start: 20120816, end: 20120816
  3. DORYX [Concomitant]
     Indication: ACNE

REACTIONS (3)
  - Dry skin [Not Recovered/Not Resolved]
  - Skin irritation [Recovered/Resolved]
  - Erythema [Recovered/Resolved]
